FAERS Safety Report 9770031 (Version 1)
Quarter: 2013Q4

REPORT INFORMATION
  Report Type: Report from Study
  Country: NL (occurrence: NL)
  Receive Date: 20131218
  Receipt Date: 20131218
  Transmission Date: 20140711
  Serious: Yes (Hospitalization)
  Sender: FDA-Public Use
  Company Number: NL-JNJFOC-20131206579

PATIENT
  Sex: Male

DRUGS (7)
  1. ABIRATERONE ACETATE [Suspect]
     Indication: PROSTATE CANCER
     Route: 048
     Dates: start: 20130801
  2. OXYCONTIN [Concomitant]
     Route: 065
  3. OXYNORM [Concomitant]
  4. ZOLADEX [Concomitant]
     Route: 065
  5. PREDNISONE [Concomitant]
     Route: 065
  6. MOVICOLON [Concomitant]
     Route: 065
  7. CALCI-CHEW [Concomitant]
     Route: 065

REACTIONS (1)
  - Malaise [Unknown]
